FAERS Safety Report 5802658-9 (Version None)
Quarter: 2008Q3

REPORT INFORMATION
  Report Type: 
  Country: None (occurrence: None)
  Receive Date: 20080708
  Receipt Date: 20080605
  Transmission Date: 20090109
  Serious: No
  Sender: FDA-Public Use
  Company Number: US-BAYER-200825579NA

PATIENT
  Age: 27 Year
  Sex: Female

DRUGS (1)
  1. MIRENA [Suspect]
     Indication: UNEVALUABLE EVENT
     Route: 015
     Dates: start: 20060901

REACTIONS (2)
  - IUCD COMPLICATION [None]
  - VAGINAL DISCHARGE [None]
